FAERS Safety Report 5160924-7 (Version None)
Quarter: 2006Q4

REPORT INFORMATION
  Report Type: 
  Country: None (occurrence: None)
  Receive Date: 20061130
  Receipt Date: 20051011
  Transmission Date: 20070319
  Serious: No
  Sender: FDA-Public Use
  Company Number: US-BRISTOL-MYERS SQUIBB COMPANY-13141429

PATIENT
  Age: 48 Year
  Sex: Male
  Weight: 76 kg

DRUGS (1)
  1. AVALIDE [Suspect]
     Indication: HYPERTENSION
     Dosage: DOSAGE FORM: 150 MG / 12.5 MG SAMPLE BLISTER CARD
     Dates: start: 20050901, end: 20051011

REACTIONS (1)
  - SWELLING [None]
